FAERS Safety Report 8258598-1 (Version None)
Quarter: 2012Q2

REPORT INFORMATION
  Report Type: 
  Country: None (occurrence: None)
  Receive Date: 20120404
  Receipt Date: 20120329
  Transmission Date: 20120825
  Serious: Yes (Hospitalization)
  Sender: FDA-Public Use
  Company Number: IT-BRISTOL-MYERS SQUIBB COMPANY-16455727

PATIENT
  Age: 31 Year
  Sex: Female

DRUGS (3)
  1. REYATAZ [Suspect]
     Indication: ACUTE HIV INFECTION
     Dosage: INTERRUPTED ON 30DEC11 AND RESTARTED,RIGIDE CAPSULES
     Route: 048
     Dates: start: 20111215
  2. NORVIR [Suspect]
     Indication: ACUTE HIV INFECTION
     Dosage: 100MG FILM-COVERED TABLET
     Route: 048
     Dates: start: 20111215, end: 20111230
  3. COMBIVIR [Suspect]
     Indication: ACUTE HIV INFECTION
     Dosage: FILM-COVERED TABLETS
     Route: 048
     Dates: start: 20111215, end: 20111230

REACTIONS (2)
  - PREGNANCY [None]
  - ABORTION SPONTANEOUS [None]
